FAERS Safety Report 25202370 (Version 1)
Quarter: 2025Q2

REPORT INFORMATION
  Report Type: Spontaneous
  Country: CA (occurrence: CA)
  Receive Date: 20250416
  Receipt Date: 20250416
  Transmission Date: 20250716
  Serious: Yes (Hospitalization, Other)
  Sender: SANDOZ
  Company Number: CA-SANDOZ-SDZ2024CA079964

PATIENT
  Age: 61 Year
  Sex: Female

DRUGS (12)
  1. CARFILZOMIB [Suspect]
     Active Substance: CARFILZOMIB
     Indication: Plasma cell myeloma
     Route: 042
  2. CARFILZOMIB [Suspect]
     Active Substance: CARFILZOMIB
     Route: 042
  3. DECADRON (DEXAMETHASONE SODIUM PHOSPHATE) [Suspect]
     Active Substance: DEXAMETHASONE SODIUM PHOSPHATE
     Indication: Plasma cell myeloma
     Route: 048
  4. METFORMIN HYDROCHLORIDE\SITAGLIPTIN PHOSPHATE [Suspect]
     Active Substance: METFORMIN HYDROCHLORIDE\SITAGLIPTIN PHOSPHATE
     Indication: Hyperglycaemia
     Dosage: 2 MG, QD
     Route: 048
  5. METFORMIN HYDROCHLORIDE\SITAGLIPTIN PHOSPHATE [Suspect]
     Active Substance: METFORMIN HYDROCHLORIDE\SITAGLIPTIN PHOSPHATE
     Indication: Diabetes mellitus
  6. AZD-1222 [Concomitant]
     Active Substance: AZD-1222
     Indication: COVID-19 prophylaxis
     Route: 065
  7. Davesomeran;Elasomeran [Concomitant]
     Indication: COVID-19 prophylaxis
     Route: 065
  8. EDOXABAN [Concomitant]
     Active Substance: EDOXABAN
     Indication: Prophylaxis
     Route: 048
  9. EPOETIN ALFA [Concomitant]
     Active Substance: ERYTHROPOIETIN
     Indication: Anaemia
     Route: 058
  10. ERGOCALCIFEROL [Concomitant]
     Active Substance: ERGOCALCIFEROL
     Indication: Prophylaxis
     Route: 048
  11. HYDROMORPHONE [Concomitant]
     Active Substance: HYDROMORPHONE
     Indication: Back pain
     Dosage: 1 MG, QD
     Route: 048
  12. VALACYCLOVIR HYDROCHLORIDE [Concomitant]
     Active Substance: VALACYCLOVIR HYDROCHLORIDE
     Indication: Prophylaxis
     Dosage: 1000 MG, BID
     Route: 048

REACTIONS (2)
  - Metabolic acidosis [Recovered/Resolved]
  - Acute kidney injury [Recovered/Resolved]
